FAERS Safety Report 21170195 (Version 3)
Quarter: 2022Q3

REPORT INFORMATION
  Report Type: Spontaneous
  Country: IE (occurrence: IE)
  Receive Date: 20220804
  Receipt Date: 20220822
  Transmission Date: 20221026
  Serious: Yes (Other)
  Sender: FDA-Public Use
  Company Number: IE-CDSU_IT-IE-MEN-083078

PATIENT
  Age: 77 Year
  Sex: Male

DRUGS (2)
  1. ORITAVANCIN [Suspect]
     Active Substance: ORITAVANCIN
     Indication: Abdominal wall wound
     Dosage: 1,2 G ONCE WEEKLY
     Route: 042
     Dates: start: 20220621, end: 20220621
  2. ORITAVANCIN [Suspect]
     Active Substance: ORITAVANCIN
     Indication: Infection
     Dosage: 1,2 G ONCE WEEKLY
     Route: 042
     Dates: start: 20220628, end: 20220628

REACTIONS (6)
  - Spinal pain [Recovered/Resolved]
  - Emotional distress [Recovered/Resolved]
  - Oxygen saturation decreased [Unknown]
  - Back pain [Recovered/Resolved]
  - Multiple use of single-use product [Unknown]
  - Product use in unapproved indication [Recovered/Resolved]

NARRATIVE: CASE EVENT DATE: 20220621
